FAERS Safety Report 19378947 (Version 1)
Quarter: 2021Q2

REPORT INFORMATION
  Report Type: Report from Study
  Country: CR (occurrence: CR)
  Receive Date: 20210606
  Receipt Date: 20210606
  Transmission Date: 20210717
  Serious: Yes (Other)
  Sender: FDA-Public Use
  Company Number: NVSC2021CR122822

PATIENT
  Age: 59 Year
  Sex: Male

DRUGS (2)
  1. VYMADA [Suspect]
     Active Substance: SACUBITRIL\VALSARTAN
     Indication: ARRHYTHMIA
     Dosage: 100 MG (STARTED APPROXIMATATELY 1 MONTH AGO)
     Route: 065
  2. VYMADA [Suspect]
     Active Substance: SACUBITRIL\VALSARTAN
     Indication: CARDIAC FAILURE
     Dosage: 50 MG (STARTED APPROXIMATELY 2 MONTHS AGO, STOPPED APPROXIMATELY 1 MONTH AGO)
     Route: 065

REACTIONS (4)
  - Ventricular dysfunction [Unknown]
  - Off label use [Unknown]
  - Myocarditis [Unknown]
  - Tachycardia [Unknown]
